FAERS Safety Report 19680508 (Version 3)
Quarter: 2021Q3

REPORT INFORMATION
  Report Type: Spontaneous
  Country: BR (occurrence: BR)
  Receive Date: 20210810
  Receipt Date: 20210915
  Transmission Date: 20211014
  Serious: Yes (Hospitalization, Other)
  Sender: FDA-Public Use
  Company Number: BR-SA-2021SA261023

PATIENT
  Sex: Female
  Weight: 83 kg

DRUGS (4)
  1. CYCLOSPORINE. [Suspect]
     Active Substance: CYCLOSPORINE
  2. DEFLAZACORT [Suspect]
     Active Substance: DEFLAZACORT
  3. DUPIXENT [Suspect]
     Active Substance: DUPILUMAB
     Indication: DERMATITIS ATOPIC
     Dosage: UNK
  4. DUPIXENT [Suspect]
     Active Substance: DUPILUMAB
     Dosage: UNK, QOW
     Dates: start: 20210702

REACTIONS (8)
  - Neck mass [Not Recovered/Not Resolved]
  - Impetigo [Unknown]
  - Dermatitis atopic [Recovering/Resolving]
  - Lymphadenopathy [Unknown]
  - Dermatitis exfoliative generalised [Recovering/Resolving]
  - Lymph node pain [Unknown]
  - Neck pain [Not Recovered/Not Resolved]
  - Unevaluable event [Unknown]

NARRATIVE: CASE EVENT DATE: 202101
